FAERS Safety Report 7170197-1 (Version None)
Quarter: 2010Q4

REPORT INFORMATION
  Report Type: 
  Country: None (occurrence: None)
  Receive Date: 20101214
  Receipt Date: 20101214
  Transmission Date: 20110411
  Serious: No
  Sender: FDA-Public Use
  Company Number: None

PATIENT
  Sex: Female
  Weight: 65.318 kg

DRUGS (1)
  1. LEVAQUIN [Suspect]
     Indication: CYSTITIS
     Dosage: 250MG 1 DAILY
     Dates: start: 20100902, end: 20100916

REACTIONS (3)
  - MUSCLE SPASMS [None]
  - MYALGIA [None]
  - TENDON PAIN [None]
